FAERS Safety Report 5414226-1 (Version None)
Quarter: 2007Q3

REPORT INFORMATION
  Report Type: 
  Country: None (occurrence: None)
  Receive Date: 20070713
  Receipt Date: 20070209
  Transmission Date: 20080115
  Serious: Yes (Hospitalization)
  Sender: FDA-Public Use
  Company Number: US-JNJFOC-20070204489

PATIENT
  Age: 26 Year
  Sex: Female
  Weight: 56.6996 kg

DRUGS (7)
  1. ORTHO EVRA [Suspect]
     Indication: DRUG USE FOR UNKNOWN INDICATION
     Dosage: TRANSDERMAL
     Route: 062
     Dates: start: 20041001, end: 20041028
  2. IMURAN [Concomitant]
  3. PRENATAL VITAMINS (PRENATAL VITAMINS) [Concomitant]
  4. LORTAB [Concomitant]
  5. XANAX [Concomitant]
  6. MEDROL DOSEPAK (METHYLPREDNISOLONE) [Concomitant]
  7. PROTONIX [Concomitant]

REACTIONS (2)
  - INTRACRANIAL VENOUS SINUS THROMBOSIS [None]
  - JUGULAR VEIN THROMBOSIS [None]
